FAERS Safety Report 4706649-0 (Version None)
Quarter: 2005Q3

REPORT INFORMATION
  Report Type: 
  Country: None (occurrence: None)
  Receive Date: 20050705
  Receipt Date: 20050622
  Transmission Date: 20060218
  Serious: Yes (Other)
  Sender: FDA-Public Use
  Company Number: DE-ROCHE-408423

PATIENT
  Sex: Male

DRUGS (1)
  1. TIKLYD [Suspect]
     Indication: DRUG USE FOR UNKNOWN INDICATION
     Route: 048

REACTIONS (4)
  - ASTHENIA [None]
  - CARDIAC FAILURE [None]
  - INTENTIONAL MISUSE [None]
  - OVERDOSE [None]
